FAERS Safety Report 21669103 (Version 1)
Quarter: 2022Q4

REPORT INFORMATION
  Report Type: Spontaneous
  Country: US (occurrence: US)
  Receive Date: 20221201
  Receipt Date: 20221201
  Transmission Date: 20230113
  Serious: No
  Sender: FDA-Public Use
  Company Number: US-BIOVITRUM-2022US10425

PATIENT
  Sex: Female

DRUGS (2)
  1. KINERET [Suspect]
     Active Substance: ANAKINRA
     Indication: Rheumatoid arthritis
     Dates: start: 20201002
  2. KINERET [Suspect]
     Active Substance: ANAKINRA
     Dates: start: 202010

REACTIONS (4)
  - Pyrexia [Unknown]
  - Depression [Unknown]
  - Sinusitis [Unknown]
  - Product dose omission issue [Unknown]
